FAERS Safety Report 12696227 (Version 1)
Quarter: 2016Q3

REPORT INFORMATION
  Report Type: Report from Study
  Country: IT (occurrence: IT)
  Receive Date: 20160829
  Receipt Date: 20160829
  Transmission Date: 20161109
  Serious: Yes (Other)
  Sender: FDA-Public Use
  Company Number: IT-ROCHE-1822012

PATIENT
  Sex: Female

DRUGS (14)
  1. EPIRUBICIN [Suspect]
     Active Substance: EPIRUBICIN
     Indication: BREAST CANCER
     Dosage: DAYS 1, EVERY 21 DAYS
     Route: 065
  2. CYCLOPHOSPHAMIDE. [Suspect]
     Active Substance: CYCLOPHOSPHAMIDE
     Dosage: DAYS 1, EVERY 21 DAYS
     Route: 065
  3. 5-FLUOROURACIL [Suspect]
     Active Substance: FLUOROURACIL
     Dosage: DAYS 1, EVERY 21 DAYS
     Route: 065
  4. TRASTUZUMAB [Suspect]
     Active Substance: TRASTUZUMAB
     Dosage: SUBSEQUENT CYCLES
     Route: 042
  5. DECAPEPTYL [Concomitant]
     Active Substance: TRIPTORELIN
     Dosage: BETWEEN 0 AND 14 DAYS BEFORE THE FIRST CHEMOTHERAPY CYCLE, AND THE LAST INJECTION WAS ADMINISTERED 2
     Route: 030
  6. METHOTREXATE. [Suspect]
     Active Substance: METHOTREXATE
     Indication: BREAST CANCER
     Dosage: DAYS 1 AND 8, EVERY 28 DAYS
     Route: 065
  7. 5-FLUOROURACIL [Suspect]
     Active Substance: FLUOROURACIL
     Indication: BREAST CANCER
     Dosage: DAYS 1 AND 8, EVERY 28 DAYS
     Route: 065
  8. DOXORUBICIN [Suspect]
     Active Substance: DOXORUBICIN
     Indication: BREAST CANCER
     Dosage: DAYS 1, EVERY 21 DAYS
     Route: 065
  9. TRASTUZUMAB [Suspect]
     Active Substance: TRASTUZUMAB
     Indication: BREAST CANCER
     Dosage: FIRST CYCLE
     Route: 042
  10. CYCLOPHOSPHAMIDE. [Suspect]
     Active Substance: CYCLOPHOSPHAMIDE
     Indication: BREAST CANCER
     Dosage: DAYS 1 AND 8, EVERY 28 DAYS
     Route: 065
  11. DOCETAXEL. [Suspect]
     Active Substance: DOCETAXEL
     Indication: BREAST CANCER
     Dosage: DAY 1 EVERY 21 DAYS
     Route: 065
  12. TAMOXIFEN [Concomitant]
     Active Substance: TAMOXIFEN
     Indication: BREAST CANCER
  13. CYCLOPHOSPHAMIDE. [Suspect]
     Active Substance: CYCLOPHOSPHAMIDE
     Dosage: DAYS 1, EVERY 21 DAYS
     Route: 065
  14. EPIRUBICIN [Suspect]
     Active Substance: EPIRUBICIN
     Dosage: DAYS 1, EVERY 21 DAYS
     Route: 065

REACTIONS (2)
  - Amenorrhoea [Unknown]
  - Premature menopause [Unknown]
